FAERS Safety Report 8221944-9 (Version None)
Quarter: 2012Q1

REPORT INFORMATION
  Report Type: 
  Country: None (occurrence: None)
  Receive Date: 20120307
  Receipt Date: 20110419
  Transmission Date: 20120608
  Serious: Yes (Other)
  Sender: FDA-Public Use
  Company Number: PHHY2011US33906

PATIENT
  Sex: Male

DRUGS (11)
  1. CALCIUM CITRATE (CALCIUM CITRATE) [Concomitant]
  2. AFINITOR [Suspect]
     Dosage: 10 MG, QD
  3. HYDROCHLOROTHIAZIDE [Concomitant]
  4. CRESTOR [Concomitant]
  5. GLIPIZIDE [Concomitant]
  6. OXYCONTIN [Concomitant]
  7. ASPIRIN [Concomitant]
  8. QUINAPRIL HCL [Concomitant]
  9. VICODIN [Concomitant]
  10. NIASPAN [Concomitant]
  11. LEVOTHYROXINE SODIUM [Concomitant]

REACTIONS (3)
  - BLOOD GLUCOSE INCREASED [None]
  - MALAISE [None]
  - THIRST [None]
